FAERS Safety Report 10993531 (Version 2)
Quarter: 2015Q2

REPORT INFORMATION
  Report Type: Report from Study
  Country: US (occurrence: US)
  Receive Date: 20150407
  Receipt Date: 20150520
  Transmission Date: 20150821
  Serious: Yes (Death, Life-Threatening, Hospitalization, Disabling, Other)
  Sender: FDA-Public Use
  Company Number: US-ROCHE-1560857

PATIENT
  Age: 81 Year
  Sex: Female

DRUGS (2)
  1. BEVACIZUMAB [Suspect]
     Active Substance: BEVACIZUMAB
     Indication: GLIOBLASTOMA
     Dosage: LAST TREATMENT PRIOR TO EVENT: 21/MAR/2014
     Route: 065
     Dates: start: 20140321
  2. TEMOZOLOMIDE. [Suspect]
     Active Substance: TEMOZOLOMIDE
     Indication: GLIOBLASTOMA
     Dosage: LAST TREATMENT PRIOR TO EVENT: 24/MAR/2014
     Route: 065
     Dates: start: 20140321

REACTIONS (2)
  - Central nervous system haemorrhage [Fatal]
  - Mental status changes [Unknown]

NARRATIVE: CASE EVENT DATE: 20140325
